FAERS Safety Report 18618339 (Version 3)
Quarter: 2024Q3

REPORT INFORMATION
  Report Type: Spontaneous
  Country: IE (occurrence: IE)
  Receive Date: 20201215
  Receipt Date: 20240711
  Transmission Date: 20241017
  Serious: Yes (Other)
  Sender: SANOFI AVENTIS
  Company Number: IE-EMA-DD-20190204-JAIN_H1-093606

PATIENT
  Sex: Female
  Weight: 1.5 kg

DRUGS (18)
  1. DICLOFENAC [Suspect]
     Active Substance: DICLOFENAC
     Indication: Foetal exposure during pregnancy
     Dosage: UNK
     Route: 064
  2. PROPOFOL [Suspect]
     Active Substance: PROPOFOL
     Indication: Foetal exposure during pregnancy
     Dosage: 4-6 UG/ML
     Route: 064
  3. PROPOFOL [Suspect]
     Active Substance: PROPOFOL
     Dosage: 180 MG
     Route: 064
  4. EPINEPHRINE [Suspect]
     Active Substance: EPINEPHRINE
     Indication: Foetal exposure during pregnancy
     Dosage: 15 ML
     Route: 064
  5. OMEPRAZOLE [Suspect]
     Active Substance: OMEPRAZOLE
     Indication: Foetal exposure during pregnancy
     Dosage: 20 MG, QD
     Route: 064
  6. LIDOCAINE [Suspect]
     Active Substance: LIDOCAINE
     Indication: Foetal exposure during pregnancy
     Dosage: 2 %, INJECTION
     Route: 064
  7. ACETAMINOPHEN [Suspect]
     Active Substance: ACETAMINOPHEN
     Indication: Foetal exposure during pregnancy
     Dosage: UNK
     Route: 064
  8. RANITIDINE [Suspect]
     Active Substance: RANITIDINE
     Indication: Foetal exposure during pregnancy
     Dosage: 150 MG
     Route: 064
  9. ROCURONIUM BROMIDE [Suspect]
     Active Substance: ROCURONIUM BROMIDE
     Indication: Foetal exposure during pregnancy
     Dosage: 1 MG/KG
     Route: 064
  10. ALPRAZOLAM [Suspect]
     Active Substance: ALPRAZOLAM
     Indication: Foetal exposure during pregnancy
     Dosage: 250 UG, Q12H
     Route: 064
  11. OXYGEN [Suspect]
     Active Substance: OXYGEN
     Indication: Foetal exposure during pregnancy
     Dosage: 50 L, QMN
     Route: 064
  12. OXYGEN [Suspect]
     Active Substance: OXYGEN
     Dosage: 15 L, QMN
     Route: 064
  13. DEXMEDETOMIDINE [Suspect]
     Active Substance: DEXMEDETOMIDINE
     Indication: Foetal exposure during pregnancy
     Dosage: UNK
     Route: 064
  14. DEXMEDETOMIDINE [Suspect]
     Active Substance: DEXMEDETOMIDINE
     Dosage: 0.8 UG/KG OVER 10 MIN
     Route: 064
  15. DEXMEDETOMIDINE [Suspect]
     Active Substance: DEXMEDETOMIDINE
     Dosage: 0.8 UG/KG, QH
     Route: 064
  16. DEXMEDETOMIDINE [Suspect]
     Active Substance: DEXMEDETOMIDINE
     Dosage: 0.8-1.0 UG/KG/H
     Route: 064
  17. SODIUM CITRATE [Suspect]
     Active Substance: SODIUM CITRATE
     Indication: Foetal exposure during pregnancy
     Dosage: 30 ML
     Route: 064
  18. LEVOBUPIVACAINE [Suspect]
     Active Substance: LEVOBUPIVACAINE
     Indication: Foetal exposure during pregnancy
     Dosage: MATERNAL DOSE: 30 ML
     Route: 064

REACTIONS (3)
  - Premature baby [Unknown]
  - Low birth weight baby [Unknown]
  - Foetal exposure during pregnancy [Unknown]
